FAERS Safety Report 11932725 (Version 1)
Quarter: 2016Q1

REPORT INFORMATION
  Report Type: Spontaneous
  Country: US (occurrence: US)
  Receive Date: 20160120
  Receipt Date: 20160120
  Transmission Date: 20160526
  Serious: Yes (Other)
  Sender: FDA-Public Use
  Company Number: US-PFIZER INC-2016027721

PATIENT
  Age: 43 Year
  Sex: Female
  Weight: 107.5 kg

DRUGS (4)
  1. PRISTIQ EXTENDED RELEASE [Suspect]
     Active Substance: DESVENLAFAXINE SUCCINATE
     Indication: MOOD SWINGS
  2. GEODON [Suspect]
     Active Substance: ZIPRASIDONE HYDROCHLORIDE\ZIPRASIDONE MESYLATE
     Indication: TACHYPHRENIA
     Dosage: 40 MG, UNK
     Route: 048
  3. PRISTIQ EXTENDED RELEASE [Suspect]
     Active Substance: DESVENLAFAXINE SUCCINATE
     Indication: DEPRESSION
     Dosage: 100 MG, 1X/DAY
     Route: 048
  4. GEODON [Suspect]
     Active Substance: ZIPRASIDONE HYDROCHLORIDE\ZIPRASIDONE MESYLATE
     Indication: MOOD SWINGS
     Dosage: 20 MG ONCE AT NIGHT
     Route: 048
     Dates: end: 20160112

REACTIONS (9)
  - Pain [Unknown]
  - Activities of daily living impaired [Unknown]
  - Road traffic accident [Unknown]
  - Thinking abnormal [Unknown]
  - Suicidal ideation [Not Recovered/Not Resolved]
  - Psychiatric symptom [Not Recovered/Not Resolved]
  - Malaise [Unknown]
  - Stress [Unknown]
  - Somnolence [Unknown]
